FAERS Safety Report 15920696 (Version 1)
Quarter: 2019Q1

REPORT INFORMATION
  Report Type: Spontaneous
  Country: SA (occurrence: SA)
  Receive Date: 20190205
  Receipt Date: 20190205
  Transmission Date: 20190417
  Serious: Yes (Death, Hospitalization)
  Sender: FDA-Public Use
  Company Number: SA-PFIZER INC-2018215597

PATIENT
  Age: 11 Year
  Sex: Female

DRUGS (9)
  1. VINCRISTINE [Concomitant]
     Active Substance: VINCRISTINE
     Indication: ACUTE LYMPHOCYTIC LEUKAEMIA
     Dosage: 1.5 MG/M2, CYCLIC (DAYS 0, 7, 14, 21)
     Dates: start: 200112
  2. ASPARAGINASE [Concomitant]
     Active Substance: ASPARAGINASE
     Indication: ACUTE LYMPHOCYTIC LEUKAEMIA
     Dosage: UNK, EVERY 3 WEEKS (6000 U/M2) (9 DOSES)
     Dates: start: 200112
  3. AMIKACIN. [Suspect]
     Active Substance: AMIKACIN
     Indication: PNEUMONIA
     Dosage: UNK
     Dates: start: 200112
  4. DEXAMETHASONE. [Concomitant]
     Active Substance: DEXAMETHASONE
     Indication: ACUTE LYMPHOCYTIC LEUKAEMIA
     Dosage: 6.0 MG/M2, CYCLIC (DAYS 0-28)
     Dates: start: 200112
  5. DAUNORUBICIN [Concomitant]
     Active Substance: DAUNORUBICIN
     Indication: ACUTE LYMPHOCYTIC LEUKAEMIA
     Dosage: 22.5 MG/M2, CYCLIC (DAYS 14, 15)
     Dates: start: 200112
  6. COTRIMOXAZOLE [Suspect]
     Active Substance: SULFAMETHOXAZOLE\TRIMETHOPRIM
     Indication: PNEUMONIA
     Dosage: UNK, (HIGH DOSE)
     Dates: start: 200112
  7. CEFTAZIDIME. [Suspect]
     Active Substance: CEFTAZIDIME
     Indication: PNEUMONIA
     Dosage: UNK
     Dates: start: 200112
  8. COTRIMOXAZOLE [Suspect]
     Active Substance: SULFAMETHOXAZOLE\TRIMETHOPRIM
     Indication: PROPHYLAXIS
  9. VANCOMYCIN HCL [Suspect]
     Active Substance: VANCOMYCIN HYDROCHLORIDE
     Indication: PNEUMONIA
     Dosage: UNK
     Dates: start: 200112

REACTIONS (2)
  - Stenotrophomonas infection [Fatal]
  - Drug ineffective [Fatal]

NARRATIVE: CASE EVENT DATE: 200112
